FAERS Safety Report 8314343-2 (Version None)
Quarter: 2012Q2

REPORT INFORMATION
  Report Type: 
  Country: None (occurrence: None)
  Receive Date: 20120426
  Receipt Date: 20120423
  Transmission Date: 20120825
  Serious: No
  Sender: FDA-Public Use
  Company Number: US-PFIZER INC-2012101146

PATIENT
  Age: 60 Year
  Sex: Male

DRUGS (8)
  1. LIPITOR [Concomitant]
     Indication: BLOOD CHOLESTEROL INCREASED
     Dosage: UNK
  2. CARDURA [Suspect]
     Indication: PROSTATOMEGALY
     Dosage: UNK
  3. ALPHAGAN [Concomitant]
     Indication: GLAUCOMA
     Dosage: UNK
  4. WELLBUTRIN [Concomitant]
     Indication: DEPRESSION
     Dosage: UNK
  5. LEXAPRO [Suspect]
     Indication: ANXIETY
     Dosage: 10 MG, 1X/DAY (10MG, 1 IN 1 D)
     Route: 048
     Dates: start: 20040101, end: 20100101
  6. TRICOR [Concomitant]
     Indication: BLOOD CHOLESTEROL INCREASED
     Dosage: UNK
  7. LEXAPRO [Suspect]
     Indication: DEPRESSION
     Dosage: 10 MG, DAILY
     Dates: start: 20050101
  8. TAMSULOSIN HYDROCHLORIDE [Suspect]
     Indication: PROSTATOMEGALY
     Dosage: UNK

REACTIONS (1)
  - LIBIDO DECREASED [None]
